FAERS Safety Report 5653532-2 (Version None)
Quarter: 2008Q1

REPORT INFORMATION
  Report Type: 
  Country: None (occurrence: None)
  Receive Date: 20080131
  Receipt Date: 20071108
  Transmission Date: 20080703
  Serious: No
  Sender: FDA-Public Use
  Company Number: US200711002349

PATIENT
  Sex: Female

DRUGS (3)
  1. BYETTA [Suspect]
     Dosage: SUBCUTANEOUS; 5 UG, SUBCUTANEOUS
     Route: 058
     Dates: start: 20070101, end: 20070101
  2. BYETTA [Suspect]
     Dosage: SUBCUTANEOUS; 5 UG, SUBCUTANEOUS
     Route: 058
     Dates: start: 20070615
  3. EXENATIDE 5MCG PEN, DISPOSABLE DEVICE [Concomitant]

REACTIONS (2)
  - DECREASED APPETITE [None]
  - INCORRECT DOSE ADMINISTERED [None]
